FAERS Safety Report 5672884-0 (Version None)
Quarter: 2008Q1

REPORT INFORMATION
  Report Type: 
  Country: None (occurrence: None)
  Receive Date: 20080319
  Receipt Date: 20080311
  Transmission Date: 20080703
  Serious: Yes (Hospitalization)
  Sender: FDA-Public Use
  Company Number: A0685673A

PATIENT
  Age: 43 Year
  Sex: Female

DRUGS (7)
  1. LAMICTAL [Suspect]
     Indication: COMPLEX PARTIAL SEIZURES
     Dosage: 300MG TWICE PER DAY
     Route: 048
     Dates: start: 20060101
  2. SEASONALE [Suspect]
     Indication: CONTRACEPTION
     Dates: start: 20070101
  3. KEPPRA [Suspect]
     Indication: COMPLEX PARTIAL SEIZURES
  4. BIRTH CONTROL PILL [Suspect]
     Indication: HORMONE THERAPY
  5. DILANTIN [Suspect]
     Indication: CONVULSION
  6. ZONEGRAN [Suspect]
     Indication: CONVULSION
  7. FUROSEMIDE [Concomitant]

REACTIONS (3)
  - CONVULSION [None]
  - DRUG INTERACTION [None]
  - GRAND MAL CONVULSION [None]
